FAERS Safety Report 6335012-4 (Version None)
Quarter: 2009Q3

REPORT INFORMATION
  Report Type: 
  Country: None (occurrence: None)
  Receive Date: 20090831
  Receipt Date: 20090819
  Transmission Date: 20100115
  Serious: Yes (Hospitalization)
  Sender: FDA-Public Use
  Company Number: JP-NOVOPROD-290750

PATIENT
  Age: 57 Year
  Sex: Male

DRUGS (1)
  1. NOVORAPID CHU PENFILL [Suspect]
     Indication: DIABETES MELLITUS
     Dosage: 100 IU, QD
     Route: 058

REACTIONS (2)
  - ANTI-INSULIN ANTIBODY POSITIVE [None]
  - INSULIN RESISTANCE [None]
